FAERS Safety Report 4707229-3 (Version None)
Quarter: 2005Q3

REPORT INFORMATION
  Report Type: 
  Country: None (occurrence: None)
  Receive Date: 20050701
  Receipt Date: 20050622
  Transmission Date: 20060218
  Serious: Yes (Hospitalization)
  Sender: FDA-Public Use
  Company Number: GBWYE765422JUN05

PATIENT
  Age: 20 Year
  Sex: Male

DRUGS (1)
  1. ADVIL [Suspect]
     Indication: PAIN
     Dosage: 1.8-2.4G UNKNOWN FREQUENCY ORAL
     Route: 048

REACTIONS (4)
  - BACK PAIN [None]
  - FLUID OVERLOAD [None]
  - RENAL FAILURE ACUTE [None]
  - RENAL TUBULAR NECROSIS [None]
